FAERS Safety Report 4352647-9 (Version None)
Quarter: 2004Q2

REPORT INFORMATION
  Report Type: 
  Country: None (occurrence: None)
  Receive Date: 20040504
  Receipt Date: 20040419
  Transmission Date: 20050107
  Serious: Yes (Hospitalization)
  Sender: FDA-Public Use
  Company Number: NL-MERCK-0404NLD00012

PATIENT
  Age: 58 Year
  Sex: Male

DRUGS (7)
  1. ZIDOVUDINE [Concomitant]
     Indication: HIV INFECTION
     Route: 048
  2. DICLOFENAC SODIUM [Concomitant]
     Route: 048
  3. CRIXIVAN [Suspect]
     Indication: HIV INFECTION
     Route: 048
  4. LAMIVUDINE [Concomitant]
     Indication: HIV INFECTION
     Route: 048
  5. LOSARTAN POTASSIUM [Suspect]
     Indication: HYPERTENSION
     Route: 048
  6. LOSARTAN POTASSIUM [Suspect]
     Route: 048
  7. RITONAVIR [Concomitant]
     Indication: HIV INFECTION
     Route: 048

REACTIONS (4)
  - BODY TEMPERATURE INCREASED [None]
  - HYPERTENSION [None]
  - LOCALISED OSTEOARTHRITIS [None]
  - RENAL COLIC [None]
